FAERS Safety Report 8902015 (Version 3)
Quarter: 2013Q4

REPORT INFORMATION
  Report Type: Spontaneous
  Country: US (occurrence: US)
  Receive Date: 20121112
  Receipt Date: 20131023
  Transmission Date: 20140711
  Serious: No
  Sender: FDA-Public Use
  Company Number: US-PFIZER INC-2012281564

PATIENT
  Age: 56 Year
  Sex: Female
  Weight: 77.1 kg

DRUGS (17)
  1. LYRICA [Suspect]
     Indication: NEURALGIA
     Dosage: 100 MG, 3X/DAY
     Route: 048
     Dates: start: 20090525
  2. LIPITOR [Suspect]
     Dosage: UNK
  3. ALENDRONATE SODIUM [Concomitant]
     Indication: ARTHRITIS
     Dosage: 70 MG, WEEKLY
  4. ALENDRONATE SODIUM [Concomitant]
     Indication: OSTEOPOROSIS
  5. BUPROPION HYDROCHLORIDE [Concomitant]
     Indication: ANXIETY
     Dosage: 150 MG, 2X/DAY
  6. TRAZODONE [Concomitant]
     Indication: SLEEP DISORDER
     Dosage: UNK
  7. ZYRTEC [Concomitant]
     Dosage: UNK
  8. PRILOSEC [Concomitant]
     Dosage: UNK
  9. PRO-AIR [Concomitant]
     Dosage: UNK
  10. ALBUTEROL [Concomitant]
     Dosage: UNK
  11. WELLBUTRIN SR [Concomitant]
     Dosage: UNK
  12. ASA [Concomitant]
     Dosage: UNK
  13. DESYREL [Concomitant]
     Dosage: UNK
  14. FLONASE [Concomitant]
     Dosage: UNK
  15. FOSAMAX [Concomitant]
     Dosage: UNK
  16. MUCINEX [Concomitant]
     Dosage: UNK
  17. NYSTATIN [Concomitant]
     Dosage: UNK

REACTIONS (1)
  - Drug ineffective [Unknown]
